FAERS Safety Report 16000614 (Version 19)
Quarter: 2023Q1

REPORT INFORMATION
  Report Type: Spontaneous
  Country: US (occurrence: US)
  Receive Date: 20190225
  Receipt Date: 20230127
  Transmission Date: 20230417
  Serious: Yes (Other)
  Sender: FDA-Public Use
  Company Number: US-PFIZER INC-2019076848

PATIENT
  Age: 72 Year
  Sex: Female
  Weight: 68.04 kg

DRUGS (6)
  1. CELONTIN [Suspect]
     Active Substance: METHSUXIMIDE
     Indication: Seizure
     Dosage: 300 MG, EVERY 4 HRS (6X/A DAY; 1800 MG DAILY, 6CAPSULES DAILY IN DIVIDED DOSES FOR AT LEAST 16YRS)
     Route: 048
  2. CELONTIN [Suspect]
     Active Substance: METHSUXIMIDE
     Indication: Clonic convulsion
     Dosage: 1800 MG, 1X/DAY (SIX 300MG CAPSULES ONCE A DAY)
     Route: 048
  3. CELONTIN [Suspect]
     Active Substance: METHSUXIMIDE
     Indication: Epilepsy
     Dosage: UNK
  4. CELONTIN [Suspect]
     Active Substance: METHSUXIMIDE
     Dosage: UNK
  5. ACETAZOLAMIDE [Concomitant]
     Active Substance: ACETAZOLAMIDE
     Dosage: 250 MG, 2X/DAY
     Route: 048
  6. DIAMOX SEQUELS [Concomitant]
     Active Substance: ACETAZOLAMIDE
     Dosage: 250 MG, BID

REACTIONS (13)
  - Mental impairment [Not Recovered/Not Resolved]
  - Therapeutic product effect incomplete [Unknown]
  - Stress [Unknown]
  - Electroencephalogram abnormal [Unknown]
  - Fatigue [Unknown]
  - Asthenia [Unknown]
  - Off label use [Unknown]
  - Bradyphrenia [Unknown]
  - Memory impairment [Unknown]
  - Visual impairment [Unknown]
  - Somnolence [Unknown]
  - Pain [Unknown]
  - Product prescribing error [Unknown]
